FAERS Safety Report 8712778 (Version 2)
Quarter: 2012Q4

REPORT INFORMATION
  Report Type: 
  Country: JP (occurrence: JP)
  Receive Date: 20120808
  Receipt Date: 20120926
  Transmission Date: 20130627
  Serious: Yes (Life-Threatening)
  Sender: FDA-Public Use
  Company Number: JP-GE HEALTHCARE MEDICAL DIAGNOSTICS-OMPQ-NO-1208S-0844

PATIENT
  Age: 30 Year
  Sex: Male

DRUGS (1)
  1. OMNIPAQUE [Suspect]
     Indication: APPENDICITIS
     Route: 042
     Dates: start: 20120620, end: 20120620

REACTIONS (7)
  - Anaphylactic shock [Recovered/Resolved]
  - Erythema [Recovered/Resolved]
  - Blood pressure decreased [Recovered/Resolved]
  - Pruritus [Recovered/Resolved]
  - Vomiting [Recovered/Resolved]
  - Hypoaesthesia [Recovered/Resolved]
  - Swelling face [Recovered/Resolved]
